FAERS Safety Report 9364607 (Version 1)
Quarter: 2013Q2

REPORT INFORMATION
  Report Type: Spontaneous
  Country: US (occurrence: US)
  Receive Date: 20130624
  Receipt Date: 20130624
  Transmission Date: 20140414
  Serious: No
  Sender: FDA-Public Use
  Company Number: US-B.I. PHARMACEUTICALS,INC./RIDGEFIELD-2013-BI-17132BP

PATIENT
  Age: 53 Year
  Sex: Male
  Weight: 108 kg

DRUGS (7)
  1. COMBIVENT [Suspect]
     Indication: ASTHMA
     Dosage: STRENGTH: 18 MCG / 103 MCG; DAILY DOSE: 144 MCG / 824 MCG
     Route: 055
     Dates: start: 2000, end: 20130612
  2. COMBIVENT [Suspect]
     Indication: ASTHMA
     Dosage: STRENGTH: 20 MCG / 100 MCG; DAILY DOSE: 80 MCG / 400 MCG
     Route: 055
     Dates: start: 20130612
  3. NOVOLOG INSULIN [Concomitant]
     Indication: DIABETES MELLITUS
     Dosage: SUBCUTANEOUS, STRENGTH: SLIDING SCALE
     Route: 058
     Dates: start: 2005
  4. HYDROCHLOROTHIAZIDE [Concomitant]
     Indication: FLUID RETENTION
     Dosage: 12.5 MG
     Route: 048
     Dates: start: 2008
  5. LANTUS INSULIN [Concomitant]
     Indication: DIABETES MELLITUS
     Dosage: 60 U
     Route: 058
     Dates: start: 2005
  6. COZAAR [Concomitant]
     Indication: HYPERTENSION
     Dosage: 100 MCG
     Route: 048
     Dates: start: 2005
  7. COATED ASPIRIN [Concomitant]
     Indication: DIABETES MELLITUS
     Dosage: 162 MCG
     Route: 048
     Dates: start: 2008

REACTIONS (3)
  - Abdominal pain upper [Not Recovered/Not Resolved]
  - Blood glucose increased [Not Recovered/Not Resolved]
  - Dyspnoea [Recovered/Resolved]
